APPROVED DRUG PRODUCT: LEVOCETIRIZINE DIHYDROCHLORIDE
Active Ingredient: LEVOCETIRIZINE DIHYDROCHLORIDE
Strength: 2.5MG/5ML
Dosage Form/Route: SOLUTION;ORAL
Application: A091263 | Product #001 | TE Code: AA
Applicant: PADAGIS US LLC
Approved: Nov 7, 2011 | RLD: No | RS: Yes | Type: RX